FAERS Safety Report 8965410 (Version 2)
Quarter: 2012Q4

REPORT INFORMATION
  Report Type: 
  Country: PT (occurrence: PT)
  Receive Date: 20121214
  Receipt Date: 20121221
  Transmission Date: 20130627
  Serious: Yes (Other)
  Sender: FDA-Public Use
  Company Number: PHHY2012PT114367

PATIENT
  Age: 19 Year
  Sex: Female

DRUGS (4)
  1. MINOCYCLINE [Suspect]
     Indication: ACNE
  2. RIFAMPICIN [Concomitant]
  3. CLOFAZIMINE [Concomitant]
  4. DAPSONE [Concomitant]

REACTIONS (7)
  - Type 2 lepra reaction [Recovering/Resolving]
  - Rash pustular [Recovering/Resolving]
  - Skin mass [Recovering/Resolving]
  - Erythema [Recovering/Resolving]
  - Pyrexia [Recovering/Resolving]
  - Leukocytosis [Recovering/Resolving]
  - Acid fast bacilli infection [Recovering/Resolving]
